FAERS Safety Report 20526509 (Version 6)
Quarter: 2025Q2

REPORT INFORMATION
  Report Type: Spontaneous
  Country: US (occurrence: US)
  Receive Date: 20220228
  Receipt Date: 20250508
  Transmission Date: 20250716
  Serious: Yes (Hospitalization, Other)
  Sender: PFIZER
  Company Number: US-PFIZER INC-2021785813

PATIENT
  Age: 50 Year
  Sex: Female

DRUGS (1)
  1. XELJANZ XR [Suspect]
     Active Substance: TOFACITINIB CITRATE

REACTIONS (12)
  - Cardiac disorder [Unknown]
  - Illness [Unknown]
  - Malaise [Unknown]
  - Dysstasia [Not Recovered/Not Resolved]
  - Immunodeficiency [Unknown]
  - Product dose omission issue [Unknown]
  - Weight increased [Unknown]
  - Pain [Unknown]
  - Crying [Unknown]
  - Gait inability [Unknown]
  - Dyspnoea [Unknown]
  - Muscle disorder [Unknown]

NARRATIVE: CASE EVENT DATE: 20250415
